FAERS Safety Report 7402657-X (Version None)
Quarter: 2011Q2

REPORT INFORMATION
  Report Type: 
  Country: None (occurrence: None)
  Receive Date: 20110408
  Receipt Date: 20110401
  Transmission Date: 20111010
  Serious: Yes (Death)
  Sender: FDA-Public Use
  Company Number: JP-SANOFI-AVENTIS-2011SA019582

PATIENT
  Age: 51 Year
  Sex: Male
  Weight: 75 kg

DRUGS (1)
  1. RASBURICASE [Suspect]
     Indication: TUMOUR LYSIS SYNDROME
     Route: 041
     Dates: start: 20110325, end: 20110327

REACTIONS (1)
  - DISEASE PROGRESSION [None]
